FAERS Safety Report 6944608-8 (Version None)
Quarter: 2010Q3

REPORT INFORMATION
  Report Type: 
  Country: None (occurrence: None)
  Receive Date: 20100825
  Receipt Date: 20100825
  Transmission Date: 20110219
  Serious: Yes (Life-Threatening, Hospitalization)
  Sender: FDA-Public Use
  Company Number: None

PATIENT
  Age: 44 Year
  Sex: Female
  Weight: 86.3 kg

DRUGS (2)
  1. HYDROMORPHONE HCL [Suspect]
     Indication: PAIN
     Dosage: 1 MG OTHER IV
     Route: 042
     Dates: start: 20100602, end: 20100602
  2. KETOROLAC TROMETHAMINE [Suspect]
     Indication: PAIN
     Dosage: 30 MG ONCE IV
     Route: 042
     Dates: start: 20100602, end: 20100602

REACTIONS (5)
  - APNOEA [None]
  - DRUG INEFFECTIVE [None]
  - DYSTONIA [None]
  - INCORRECT DOSE ADMINISTERED [None]
  - RESPIRATORY DEPRESSION [None]
